FAERS Safety Report 6982117-0 (Version None)
Quarter: 2010Q3

REPORT INFORMATION
  Report Type: 
  Country: None (occurrence: None)
  Receive Date: 20100914
  Receipt Date: 20091113
  Transmission Date: 20110219
  Serious: No
  Sender: FDA-Public Use
  Company Number: US-PFIZER INC-2009299378

PATIENT
  Sex: Male
  Weight: 114 kg

DRUGS (4)
  1. LYRICA [Suspect]
     Indication: OSTEOARTHRITIS
     Dosage: 50 MG, 2X/DAY
     Route: 048
     Dates: start: 20090701
  2. LYRICA [Suspect]
     Indication: BACK PAIN
  3. HYDROCHLOROTHIAZIDE [Concomitant]
     Dosage: UNK
  4. ALTACE [Concomitant]
     Dosage: UNK

REACTIONS (8)
  - BLOOD IRON INCREASED [None]
  - FATIGUE [None]
  - HEPATIC ENZYME INCREASED [None]
  - HEPATIC STEATOSIS [None]
  - NIGHT SWEATS [None]
  - PYREXIA [None]
  - WEIGHT DECREASED [None]
  - WHITE BLOOD CELL COUNT INCREASED [None]
